FAERS Safety Report 14260005 (Version 1)
Quarter: 2017Q4

REPORT INFORMATION
  Report Type: Spontaneous
  Country: US (occurrence: US)
  Receive Date: 20171207
  Receipt Date: 20171207
  Transmission Date: 20180321
  Serious: Yes (Other)
  Sender: FDA-Public Use
  Company Number: US-TEVA-2017-US-829226

PATIENT
  Sex: Female

DRUGS (1)
  1. GRANIX [Suspect]
     Active Substance: TBO-FILGRASTIM
     Indication: WHITE BLOOD CELL COUNT DECREASED
     Dosage: 300 MICROGRAM DAILY;
     Dates: start: 201711

REACTIONS (3)
  - Malaise [Unknown]
  - Pyrexia [Unknown]
  - Biopsy bone abnormal [Unknown]

NARRATIVE: CASE EVENT DATE: 201711
